FAERS Safety Report 9938602 (Version 2)
Quarter: 2014Q1

REPORT INFORMATION
  Report Type: Spontaneous
  Country: JP (occurrence: JP)
  Receive Date: 20140303
  Receipt Date: 20140328
  Transmission Date: 20141002
  Serious: Yes (Hospitalization, Other)
  Sender: FDA-Public Use
  Company Number: JP-JNJFOC-20140214571

PATIENT
  Age: 54 Year
  Sex: Male

DRUGS (7)
  1. INVEGA [Suspect]
     Indication: PRODUCT USED FOR UNKNOWN INDICATION
     Route: 048
     Dates: start: 20140110, end: 20140213
  2. NEXIUM [Suspect]
     Indication: PRODUCT USED FOR UNKNOWN INDICATION
     Route: 048
     Dates: start: 20131211
  3. SEROQUEL [Concomitant]
     Route: 048
  4. BARNETIL [Concomitant]
     Route: 048
  5. MUCOSTA [Concomitant]
     Route: 048
  6. AKINETON [Concomitant]
     Route: 048
  7. MAGMITT [Concomitant]
     Route: 048

REACTIONS (1)
  - Hyponatraemia [Recovered/Resolved]
